FAERS Safety Report 14000683 (Version 2)
Quarter: 2017Q4

REPORT INFORMATION
  Report Type: Spontaneous
  Country: US (occurrence: US)
  Receive Date: 20170922
  Receipt Date: 20171002
  Transmission Date: 20180321
  Serious: Yes (Hospitalization, Other)
  Sender: FDA-Public Use
  Company Number: US-PFIZER INC-2017406850

PATIENT
  Age: 44 Year
  Sex: Male

DRUGS (3)
  1. CARBOPLATIN. [Suspect]
     Active Substance: CARBOPLATIN
     Indication: METASTASES TO PLEURA
     Dosage: UNK, CYCLIC (ONE CYCLE)
  2. CARBOPLATIN. [Suspect]
     Active Substance: CARBOPLATIN
     Indication: SALIVARY GLAND CANCER
  3. PACLITAXEL. [Suspect]
     Active Substance: PACLITAXEL
     Indication: SALIVARY GLAND CANCER
     Dosage: UNK, CYCLIC (ONE CYCLE)

REACTIONS (1)
  - Neoplasm progression [Recovering/Resolving]
